FAERS Safety Report 8713007 (Version 5)
Quarter: 2013Q1

REPORT INFORMATION
  Report Type: Report from Study
  Country: RO (occurrence: RO)
  Receive Date: 20120808
  Receipt Date: 20130125
  Transmission Date: 20140127
  Serious: Yes (Death, Life-Threatening, Hospitalization)
  Sender: FDA-Public Use
  Company Number: RO-JNJFOC-20120610357

PATIENT
  Age: 66 Year
  Sex: Male
  Weight: 57 kg

DRUGS (4)
  1. ABIRATERONE ACETATE [Suspect]
     Route: 048
  2. ABIRATERONE ACETATE [Suspect]
     Indication: PROSTATE CANCER METASTATIC
     Route: 048
     Dates: start: 20111216, end: 20120616
  3. PREDNISONE [Suspect]
     Indication: PROSTATE CANCER METASTATIC
     Route: 048
     Dates: start: 20111216, end: 20120616
  4. METOCLOPRAMIDE [Concomitant]
     Route: 048

REACTIONS (3)
  - Cardio-respiratory arrest [Fatal]
  - Anaemia [Recovered/Resolved]
  - Dehydration [Recovered/Resolved]
